FAERS Safety Report 4597328-1 (Version None)
Quarter: 2005Q1

REPORT INFORMATION
  Report Type: 
  Country: None (occurrence: None)
  Receive Date: 20050225
  Receipt Date: 20050225
  Transmission Date: 20050727
  Serious: Yes (Other)
  Sender: FDA-Public Use
  Company Number: None

PATIENT
  Sex: Female
  Weight: 56.6996 kg

DRUGS (9)
  1. CLIMARA [Suspect]
     Indication: HORMONE REPLACEMENT THERAPY
     Dosage: 1 PATCH  EACH WEEK TRANSDERMAL
     Route: 062
     Dates: start: 20040901, end: 20050224
  2. VITAMIN C [Concomitant]
  3. CALCIUM GLUCONATE [Concomitant]
  4. MULTI-VITAMIN [Concomitant]
  5. ASTELIN SINUS SPRAY [Concomitant]
  6. ATROVENT SINUS SPRAY [Concomitant]
  7. ALLEGRA [Concomitant]
  8. RHINOCORT [Concomitant]
  9. BLACK COHOSH [Concomitant]

REACTIONS (4)
  - APPLICATION SITE DERMATITIS [None]
  - APPLICATION SITE PRURITUS [None]
  - APPLICATION SITE VESICLES [None]
  - PHARMACEUTICAL PRODUCT COMPLAINT [None]
